FAERS Safety Report 19931483 (Version 3)
Quarter: 2022Q1

REPORT INFORMATION
  Report Type: Spontaneous
  Country: US (occurrence: US)
  Receive Date: 20211008
  Receipt Date: 20220329
  Transmission Date: 20220423
  Serious: No
  Sender: FDA-Public Use
  Company Number: US-AVEO ONCOLOGY-2021-AVEO-US003567

PATIENT

DRUGS (28)
  1. FOTIVDA [Suspect]
     Active Substance: TIVOZANIB HYDROCHLORIDE
     Indication: Renal cell carcinoma
     Dosage: 1.34 MG,  DAILY CAPSULE FOR 21 DAYS THEN 7 DAYS OFF
     Route: 048
     Dates: start: 20210826
  2. FOTIVDA [Suspect]
     Active Substance: TIVOZANIB HYDROCHLORIDE
     Dosage: 0.89 MG DAILY FOR 21 DAYS THEN 7 DAYS OFF
     Route: 048
     Dates: start: 20210826
  3. ALLOPURINOL [Concomitant]
     Active Substance: ALLOPURINOL
  4. AMLODIPINE BESYLATE [Concomitant]
     Active Substance: AMLODIPINE BESYLATE
  5. ASPIRIN [Concomitant]
     Active Substance: ASPIRIN
  6. ATORVASTATIN CALCIUM [Concomitant]
     Active Substance: ATORVASTATIN CALCIUM
  7. CARVEDILOL [Concomitant]
     Active Substance: CARVEDILOL
  8. CLONIDINE [Concomitant]
     Active Substance: CLONIDINE
  9. DEXAMETHASONE [Concomitant]
     Active Substance: DEXAMETHASONE
  10. ENTRESTO [Concomitant]
     Active Substance: SACUBITRIL\VALSARTAN
  11. FAMOTIDINE [Concomitant]
     Active Substance: FAMOTIDINE
  12. FLONASE [Concomitant]
     Active Substance: FLUTICASONE PROPIONATE
  13. HYDRALAZINE [Concomitant]
     Active Substance: HYDRALAZINE HYDROCHLORIDE
  14. JARDIANCE [Concomitant]
     Active Substance: EMPAGLIFLOZIN
  15. LEVOTHYROXINE [Concomitant]
     Active Substance: LEVOTHYROXINE
  16. POTASSIUM [Concomitant]
     Active Substance: POTASSIUM
  17. PREDNISONE [Concomitant]
     Active Substance: PREDNISONE
  18. TESTOSTERONE [Concomitant]
     Active Substance: TESTOSTERONE
  19. LASIX [Concomitant]
     Active Substance: FUROSEMIDE
  20. LORAZEPAM [Concomitant]
     Active Substance: LORAZEPAM
  21. NORCO [Concomitant]
     Active Substance: ACETAMINOPHEN\HYDROCODONE BITARTRATE
  22. PANTOPRAZOLE [Concomitant]
     Active Substance: PANTOPRAZOLE
  23. NORVASC [Concomitant]
     Active Substance: AMLODIPINE BESYLATE
  24. VITAMIN D [Concomitant]
     Active Substance: VITAMIN D NOS
  25. LIPITOR [Concomitant]
     Active Substance: ATORVASTATIN CALCIUM
  26. COREG [Concomitant]
     Active Substance: CARVEDILOL
  27. ASPIRIN [Concomitant]
     Active Substance: ASPIRIN
     Dosage: 81 UNK
  28. TORSEMIDE [Suspect]
     Active Substance: TORSEMIDE

REACTIONS (10)
  - Fatigue [Unknown]
  - Blood pressure increased [Unknown]
  - Diarrhoea [Unknown]
  - Dysphonia [Unknown]
  - Gout [Unknown]
  - Dry mouth [Unknown]
  - Blister [Unknown]
  - Nasopharyngitis [Unknown]
  - Fall [Unknown]
  - Eye contusion [Recovering/Resolving]
